FAERS Safety Report 9160581 (Version 1)
Quarter: 2013Q1

REPORT INFORMATION
  Report Type: Spontaneous
  Country: FR (occurrence: None)
  Receive Date: 20130219
  Receipt Date: 20130219
  Transmission Date: 20140127
  Serious: Yes (Other)
  Sender: FDA-Public Use
  Company Number: KAD201302-000219

PATIENT
  Age: 45 Year
  Sex: Female

DRUGS (4)
  1. RIBAVIRIN (RIBAVIRIN) [Suspect]
  2. PEGINTERFERON ALFA-2A [Suspect]
  3. TELAPREVIR (TELAPREVIR) [Suspect]
  4. ERYTHROPOETIN [Concomitant]

REACTIONS (3)
  - Anaemia [None]
  - Thrombocytopenia [None]
  - Hepatic cirrhosis [None]
